FAERS Safety Report 5167742-4 (Version None)
Quarter: 2006Q4

REPORT INFORMATION
  Report Type: 
  Country: None (occurrence: None)
  Receive Date: 20061130
  Receipt Date: 20061130
  Transmission Date: 20070319
  Serious: Yes (Death)
  Sender: FDA-Public Use
  Company Number: None

PATIENT
  Age: 52 Year
  Sex: Male
  Weight: 98.8842 kg

DRUGS (1)
  1. CYMBALTA [Suspect]
     Indication: DEPRESSION
     Dosage: ONE PILL ONCE A DAY PO
     Route: 048
     Dates: start: 20060324, end: 20060326

REACTIONS (6)
  - ANOREXIA [None]
  - COMPLETED SUICIDE [None]
  - FATIGUE [None]
  - FEELING ABNORMAL [None]
  - GUN SHOT WOUND [None]
  - INSOMNIA [None]
